FAERS Safety Report 17330699 (Version 1)
Quarter: 2020Q1

REPORT INFORMATION
  Report Type: Spontaneous
  Country: US (occurrence: US)
  Receive Date: 20200110
  Receipt Date: 20200110
  Transmission Date: 20200409
  Serious: Yes (Other)
  Sender: FDA-Public Use
  Company Number: None

PATIENT
  Age: 37 Year
  Sex: Female
  Weight: 65.32 kg

DRUGS (1)
  1. GENERIC MESALAMINE 1.2 GRAMS [Suspect]
     Active Substance: MESALAMINE
     Dosage: ?          OTHER DOSE:2 TABLETS;?
     Route: 048

REACTIONS (5)
  - Abdominal pain [None]
  - Rectal haemorrhage [None]
  - Colitis ulcerative [None]
  - Diarrhoea [None]
  - Defaecation urgency [None]

NARRATIVE: CASE EVENT DATE: 201801
